FAERS Safety Report 9750377 (Version 6)
Quarter: 2014Q1

REPORT INFORMATION
  Report Type: Report from Study
  Country: US (occurrence: US)
  Receive Date: 20131212
  Receipt Date: 20140211
  Transmission Date: 20141002
  Serious: Yes (Other)
  Sender: FDA-Public Use
  Company Number: US-PURDUE-USA-2013-0109415

PATIENT
  Age: 58 Year
  Sex: Male
  Weight: 58.96 kg

DRUGS (3)
  1. OXY CR TAB [Suspect]
     Indication: BACK PAIN
     Dosage: 160 MG, BID
     Route: 048
     Dates: start: 20131220
  2. OXY CR TAB [Suspect]
     Indication: SPINAL FRACTURE
  3. OXY CR TAB [Suspect]
     Indication: BRAIN NEOPLASM

REACTIONS (15)
  - Brain neoplasm [Unknown]
  - Radiation injury [Unknown]
  - Tooth loss [Unknown]
  - Weight decreased [Unknown]
  - Mastication disorder [Unknown]
  - Body height decreased [Unknown]
  - Intervertebral disc degeneration [Unknown]
  - Rectal fissure [Not Recovered/Not Resolved]
  - Rectal haemorrhage [Not Recovered/Not Resolved]
  - Constipation [Not Recovered/Not Resolved]
  - Intentional drug misuse [Unknown]
  - Drug effect decreased [Unknown]
  - Pain [Unknown]
  - Unevaluable event [Unknown]
  - Wrong technique in drug usage process [Recovered/Resolved]
